FAERS Safety Report 4796564-9 (Version None)
Quarter: 2005Q4

REPORT INFORMATION
  Report Type: 
  Country: None (occurrence: None)
  Receive Date: 20051011
  Receipt Date: 20050124
  Transmission Date: 20060501
  Serious: Yes (Hospitalization, Other)
  Sender: FDA-Public Use
  Company Number: US-JNJFOC-20041104842

PATIENT
  Age: 37 Year
  Sex: Female
  Weight: 60.782 kg

DRUGS (2)
  1. ULTRACET [Suspect]
     Indication: PAIN
     Dosage: 1 DOSE(S), 3 IN 1 DAY, ORAL
     Route: 048
  2. PTW (ANTITHYROID PREPARATIONS) [Concomitant]

REACTIONS (1)
  - CONVULSION [None]
